FAERS Safety Report 21993034 (Version 1)
Quarter: 2023Q1

REPORT INFORMATION
  Report Type: Spontaneous
  Country: IT (occurrence: IT)
  Receive Date: 20230215
  Receipt Date: 20230215
  Transmission Date: 20230418
  Serious: Yes (Hospitalization, Other)
  Sender: FDA-Public Use
  Company Number: IT-MINISAL02-908381

PATIENT
  Age: 75 Year
  Sex: Male

DRUGS (3)
  1. METFORMIN [Suspect]
     Active Substance: METFORMIN HYDROCHLORIDE
     Indication: Type 2 diabetes mellitus
     Dosage: 1 GRAM, ONCE A DAY, DOSAGGIO: 1UNITA DI MISURA: GRAMMI FREQUENZA SOMMINISTRAZIONE: QUOTIDIANA VIA SO
     Route: 048
  2. TOUJEO [Suspect]
     Active Substance: INSULIN GLARGINE
     Indication: Type 2 diabetes mellitus
     Dosage: 22 INTERNATIONAL UNIT, ONCE A DAY, DOSAGGIO: 22UNITA DI MISURA: UNITA INTERNAZIONALI, IN MILIONI FRE
     Route: 058
  3. INSULIN LISPRO [Suspect]
     Active Substance: INSULIN LISPRO
     Indication: Type 2 diabetes mellitus
     Dosage: 1 INTERNATIONAL UNIT, ONCE A DAY,DOSAGGIO: 1UNITA DI MISURA: UNITA INTERNAZIONALI, IN MILIONI FREQUE
     Route: 058

REACTIONS (2)
  - Hypoglycaemia [Recovering/Resolving]
  - Seizure [Recovering/Resolving]

NARRATIVE: CASE EVENT DATE: 20220711
